FAERS Safety Report 7072304-8 (Version None)
Quarter: 2010Q4

REPORT INFORMATION
  Report Type: 
  Country: None (occurrence: None)
  Receive Date: 20101029
  Receipt Date: 20100203
  Transmission Date: 20110411
  Serious: No
  Sender: FDA-Public Use
  Company Number: A0838017A

PATIENT
  Age: 56 Year
  Sex: Male

DRUGS (7)
  1. ADVAIR DISKUS 100/50 [Suspect]
     Indication: CHRONIC OBSTRUCTIVE PULMONARY DISEASE
     Route: 055
     Dates: start: 20091014
  2. LEXAPRO [Concomitant]
  3. XANAX [Concomitant]
  4. TARKA [Concomitant]
  5. FOSAMAX PLUS D [Concomitant]
  6. VISTARIL [Concomitant]
  7. DARVON [Concomitant]

REACTIONS (3)
  - COUGH [None]
  - EPISTAXIS [None]
  - THROAT IRRITATION [None]
